FAERS Safety Report 17289291 (Version 2)
Quarter: 2022Q4

REPORT INFORMATION
  Report Type: Report from Study
  Country: FR (occurrence: FR)
  Receive Date: 20200120
  Receipt Date: 20221118
  Transmission Date: 20230113
  Serious: Yes (Hospitalization)
  Sender: FDA-Public Use
  Company Number: FR-MERCK HEALTHCARE KGAA-9104224

PATIENT
  Age: 72 Year
  Sex: Male

DRUGS (4)
  1. CETUXIMAB [Suspect]
     Active Substance: CETUXIMAB
     Indication: Squamous cell carcinoma of head and neck
     Dosage: 400 MG/M2, SINGLE
     Route: 041
     Dates: start: 20190617, end: 20190617
  2. CETUXIMAB [Suspect]
     Active Substance: CETUXIMAB
     Dosage: 250 MG/M2, WEEKLY (1/W)
     Route: 042
     Dates: start: 20190624, end: 20190708
  3. CETUXIMAB [Suspect]
     Active Substance: CETUXIMAB
     Dosage: 250 MG/M2, WEEKLY (1/W)
     Route: 042
     Dates: start: 20190724
  4. AVELUMAB [Concomitant]
     Active Substance: AVELUMAB
     Indication: Squamous cell carcinoma of head and neck
     Dosage: 10 MG/KG, EVERY 2 WEEKS
     Route: 042
     Dates: start: 20190617, end: 20190701

REACTIONS (4)
  - Folliculitis [Recovering/Resolving]
  - Mucosal inflammation [Recovering/Resolving]
  - Superinfection [Recovering/Resolving]
  - Encephalitis [Not Recovered/Not Resolved]

NARRATIVE: CASE EVENT DATE: 20190101
